FAERS Safety Report 19298556 (Version 1)
Quarter: 2021Q2

REPORT INFORMATION
  Report Type: Spontaneous
  Country: US (occurrence: US)
  Receive Date: 20210525
  Receipt Date: 20210525
  Transmission Date: 20210717
  Serious: No
  Sender: FDA-Public Use
  Company Number: US-TEVA-2021-US-1908324

PATIENT
  Sex: Female

DRUGS (10)
  1. MEMANTINE. [Suspect]
     Active Substance: MEMANTINE
     Route: 065
  2. CALCIUM CARBONATE. [Concomitant]
     Active Substance: CALCIUM CARBONATE
     Route: 048
  3. PRAZOSIN. [Suspect]
     Active Substance: PRAZOSIN
     Route: 065
  4. CYPROHEPTADINE HCL [Suspect]
     Active Substance: CYPROHEPTADINE HYDROCHLORIDE
     Route: 048
  5. EFFEXOR XR [Concomitant]
     Active Substance: VENLAFAXINE HYDROCHLORIDE
     Dosage: EXTENDED RELEASE 24 HOURS
     Route: 048
  6. AMITRIPTYLLINE [Suspect]
     Active Substance: AMITRIPTYLINE
     Route: 065
  7. AUSTEDO [Suspect]
     Active Substance: DEUTETRABENAZINE
     Indication: TARDIVE DYSKINESIA
     Dosage: 2 TABLETS TWICE DAY
     Route: 065
  8. GABAPENTIN. [Suspect]
     Active Substance: GABAPENTIN
     Route: 048
  9. PROPRANOLOL HCL [Concomitant]
     Active Substance: PROPRANOLOL HYDROCHLORIDE
     Route: 048
  10. OLANZAPINE. [Concomitant]
     Active Substance: OLANZAPINE
     Route: 048

REACTIONS (10)
  - Dissociation [Unknown]
  - Nightmare [Unknown]
  - Dyspepsia [Unknown]
  - Depression [Unknown]
  - Agitation [Unknown]
  - Confusional state [Unknown]
  - Arthralgia [Unknown]
  - Cough [Unknown]
  - Insomnia [Unknown]
  - Increased appetite [Unknown]
